FAERS Safety Report 6111509-7 (Version None)
Quarter: 2009Q1

REPORT INFORMATION
  Report Type: 
  Country: None (occurrence: None)
  Receive Date: 20090310
  Receipt Date: 20090310
  Transmission Date: 20090719
  Serious: Yes (Life-Threatening)
  Sender: FDA-Public Use
  Company Number: None

PATIENT
  Age: 55 Year
  Sex: Male
  Weight: 76.2043 kg

DRUGS (2)
  1. EPZICON 1 600MG TABLET DAILY TAKEN WITH [Suspect]
     Indication: HIV INFECTION
     Dates: start: 20040115, end: 20080117
  2. VIRAMUNE [Suspect]

REACTIONS (1)
  - CARDIAC FAILURE CONGESTIVE [None]
